FAERS Safety Report 15150762 (Version 1)
Quarter: 2018Q3

REPORT INFORMATION
  Report Type: Spontaneous
  Country: ES (occurrence: ES)
  Receive Date: 20180716
  Receipt Date: 20180716
  Transmission Date: 20181010
  Serious: Yes (Life-Threatening, Hospitalization, Other)
  Sender: FDA-Public Use
  Company Number: ES-MYLANLABS-2018M1050668

PATIENT
  Age: 64 Year
  Sex: Male

DRUGS (5)
  1. IBUPROFEN. [Suspect]
     Active Substance: IBUPROFEN
     Indication: MUSCULOSKELETAL PAIN
     Dosage: 600 MG, Q8H
     Route: 048
     Dates: start: 20180228
  2. DICLOFENACO                        /00372301/ [Interacting]
     Active Substance: DICLOFENAC
     Indication: MUSCULOSKELETAL PAIN
     Dosage: 50 MG, Q8H
     Route: 048
     Dates: start: 20180309
  3. NAPROXENO                          /00256201/ [Interacting]
     Active Substance: NAPROXEN
     Indication: MUSCULOSKELETAL PAIN
     Dosage: 550 MG, Q8H
     Route: 048
     Dates: start: 20180306
  4. ENANTYUM [Interacting]
     Active Substance: DEXKETOPROFEN TROMETAMOL
     Indication: MUSCULOSKELETAL PAIN
     Dosage: 25 MG, Q8H
     Route: 048
     Dates: start: 20180310, end: 20180311
  5. DIAZEPAM. [Concomitant]
     Active Substance: DIAZEPAM
     Indication: MUSCULOSKELETAL PAIN
     Dosage: 10 MG, QD
     Route: 048
     Dates: start: 20180309, end: 20180311

REACTIONS (4)
  - Renal tubular necrosis [Recovered/Resolved]
  - Hyperkalaemia [Recovered/Resolved]
  - Drug interaction [Unknown]
  - Depressed level of consciousness [Recovered/Resolved]

NARRATIVE: CASE EVENT DATE: 20180311
